FAERS Safety Report 8150416 (Version 4)
Quarter: 2013Q4

REPORT INFORMATION
  Report Type: Spontaneous
  Country: US (occurrence: US)
  Receive Date: 20110922
  Receipt Date: 20131011
  Transmission Date: 20140711
  Serious: No
  Sender: FDA-Public Use
  Company Number: US-ASTRAZENECA-2010SE46019

PATIENT
  Age: 58 Year
  Sex: Female

DRUGS (14)
  1. SEROQUEL [Suspect]
     Indication: SCHIZOPHRENIA
     Route: 048
  2. SEROQUEL [Suspect]
     Indication: BIPOLAR DISORDER
     Route: 048
  3. SEROQUEL [Suspect]
     Indication: SCHIZOPHRENIA
     Route: 048
  4. SEROQUEL [Suspect]
     Indication: BIPOLAR DISORDER
     Route: 048
  5. SEROQUEL [Suspect]
     Indication: SCHIZOPHRENIA
     Route: 048
  6. SEROQUEL [Suspect]
     Indication: BIPOLAR DISORDER
     Route: 048
  7. SEROQUEL [Suspect]
     Indication: SCHIZOPHRENIA
     Route: 048
  8. SEROQUEL [Suspect]
     Indication: BIPOLAR DISORDER
     Route: 048
  9. SEROQUEL [Suspect]
     Indication: SCHIZOPHRENIA
     Route: 048
  10. SEROQUEL [Suspect]
     Indication: BIPOLAR DISORDER
     Route: 048
  11. ZOLOFT [Suspect]
     Route: 065
  12. CYMBALTA [Concomitant]
  13. BUSPIRONE [Concomitant]
     Indication: PANIC ATTACK
  14. TYLENOL [Concomitant]
     Indication: ARTHRITIS

REACTIONS (14)
  - Malaise [Unknown]
  - Anxiety [Unknown]
  - Depressed mood [Unknown]
  - Anxiety [Unknown]
  - Anger [Unknown]
  - Crying [Unknown]
  - Dermatillomania [Unknown]
  - Therapeutic response unexpected [Unknown]
  - Agitation [Unknown]
  - Emotional distress [Unknown]
  - Insomnia related to another mental condition [Unknown]
  - Fatigue [Unknown]
  - Panic attack [Unknown]
  - Off label use [Unknown]
